FAERS Safety Report 18645242 (Version 2)
Quarter: 2021Q2

REPORT INFORMATION
  Report Type: Spontaneous
  Country: FR (occurrence: FR)
  Receive Date: 20201222
  Receipt Date: 20210408
  Transmission Date: 20210717
  Serious: Yes (Hospitalization)
  Sender: FDA-Public Use
  Company Number: FR-ROCHE-2736540

PATIENT
  Age: 77 Year
  Sex: Male
  Weight: 72 kg

DRUGS (2)
  1. TECENTRIQ [Suspect]
     Active Substance: ATEZOLIZUMAB
     Indication: HEPATOCELLULAR CARCINOMA
     Dosage: 1200 MG CONCENTRATE FOR SOLUTION FOR INFUSION
     Route: 041
     Dates: start: 20201021, end: 20201203
  2. AVASTIN [Suspect]
     Active Substance: BEVACIZUMAB
     Indication: HEPATOCELLULAR CARCINOMA
     Dosage: 25 MG / ML CONCENTRATE FOR SOLUTION FOR INFUSION
     Route: 041
     Dates: start: 20201021, end: 20201112

REACTIONS (3)
  - Haematemesis [Recovered/Resolved]
  - Starvation [Recovering/Resolving]
  - Necrotising oesophagitis [Recovering/Resolving]

NARRATIVE: CASE EVENT DATE: 202011
